FAERS Safety Report 26044048 (Version 1)
Quarter: 2025Q4

REPORT INFORMATION
  Report Type: Spontaneous
  Country: CA (occurrence: CA)
  Receive Date: 20251114
  Receipt Date: 20251114
  Transmission Date: 20260118
  Serious: Yes (Other)
  Sender: ACCORD
  Company Number: None

PATIENT
  Age: 70 Year
  Sex: Female

DRUGS (3)
  1. PACLITAXEL [Suspect]
     Active Substance: PACLITAXEL
     Indication: Product used for unknown indication
     Dosage: LIQUID
     Route: 042
  2. FENBENDAZOLE [Concomitant]
     Active Substance: FENBENDAZOLE
  3. STROMECTOL [Concomitant]
     Active Substance: IVERMECTIN

REACTIONS (3)
  - Poisoning [Unknown]
  - Altered state of consciousness [Unknown]
  - Urinary incontinence [Unknown]
